FAERS Safety Report 23574753 (Version 8)
Quarter: 2025Q2

REPORT INFORMATION
  Report Type: Spontaneous
  Country: FR (occurrence: FR)
  Receive Date: 20240228
  Receipt Date: 20250507
  Transmission Date: 20250716
  Serious: Yes (Death, Life-Threatening, Hospitalization, Other)
  Sender: AUROBINDO
  Company Number: FR-ELERTE-202400010

PATIENT
  Age: 34 Year
  Sex: Male
  Weight: 79 kg

DRUGS (49)
  1. ALPRAZOLAM [Suspect]
     Active Substance: ALPRAZOLAM
     Indication: Depression
     Route: 048
  2. ALPRAZOLAM [Suspect]
     Active Substance: ALPRAZOLAM
     Indication: Psychiatric symptom
  3. ACETAMINOPHEN\CODEINE PHOSPHATE [Suspect]
     Active Substance: ACETAMINOPHEN\CODEINE PHOSPHATE
     Indication: Product used for unknown indication
     Route: 048
     Dates: start: 2016, end: 2016
  4. FENTANYL TRANSDERMAL SYSTEM [Interacting]
     Active Substance: FENTANYL
     Indication: Back pain
     Route: 062
     Dates: start: 2016, end: 2016
  5. IBUPROFEN [Suspect]
     Active Substance: IBUPROFEN
     Indication: Back pain
     Route: 048
     Dates: start: 2016, end: 2016
  6. MIANSERIN [Suspect]
     Active Substance: MIANSERIN
     Indication: Back pain
     Route: 065
     Dates: start: 2016, end: 2016
  7. MIANSERIN [Suspect]
     Active Substance: MIANSERIN
     Indication: Depression
  8. OXAZEPAM [Interacting]
     Active Substance: OXAZEPAM
     Indication: Product used for unknown indication
     Route: 065
  9. PAROXETINE [Suspect]
     Active Substance: PAROXETINE
     Indication: Back pain
     Route: 048
     Dates: start: 20160829, end: 2016
  10. TRAMADOL [Interacting]
     Active Substance: TRAMADOL
     Indication: Back pain
     Route: 065
     Dates: start: 2016, end: 2016
  11. ACETAMINOPHEN\TRAMADOL [Interacting]
     Active Substance: ACETAMINOPHEN\TRAMADOL
     Indication: Product used for unknown indication
     Route: 065
  12. ZOPICLONE [Suspect]
     Active Substance: ZOPICLONE
     Indication: Depression
     Route: 048
  13. ZOPICLONE [Suspect]
     Active Substance: ZOPICLONE
     Indication: Psychiatric symptom
  14. CODEINE PHOSPHATE\IBUPROFEN [Suspect]
     Active Substance: CODEINE PHOSPHATE\IBUPROFEN
     Indication: Back pain
     Route: 048
     Dates: start: 2016, end: 2016
  15. ARTANE [Suspect]
     Active Substance: TRIHEXYPHENIDYL HYDROCHLORIDE
     Indication: Depression
     Route: 048
     Dates: start: 20160810, end: 20160908
  16. ARTANE [Suspect]
     Active Substance: TRIHEXYPHENIDYL HYDROCHLORIDE
     Indication: Psychiatric symptom
  17. THIOCOLCHICOSIDE [Suspect]
     Active Substance: THIOCOLCHICOSIDE
     Indication: Product used for unknown indication
     Route: 048
     Dates: start: 2016, end: 2016
  18. CLOTIAZEPAM [Interacting]
     Active Substance: CLOTIAZEPAM
     Indication: Product used for unknown indication
     Route: 048
     Dates: start: 20160830
  19. FENTANYL [Suspect]
     Active Substance: FENTANYL
     Indication: Back pain
     Route: 062
     Dates: start: 2016, end: 2016
  20. PAROXETINE MESYLATE [Suspect]
     Active Substance: PAROXETINE MESYLATE
     Indication: Back pain
     Route: 065
     Dates: start: 2016, end: 2016
  21. PAROXETINE MESYLATE [Suspect]
     Active Substance: PAROXETINE MESYLATE
     Route: 048
     Dates: start: 20160817, end: 20160908
  22. FENTANYL [Interacting]
     Active Substance: FENTANYL
     Indication: Back pain
     Route: 062
     Dates: start: 20160726, end: 2016
  23. KETAMINE [Suspect]
     Active Substance: KETAMINE
     Indication: Back pain
     Route: 065
     Dates: start: 2016, end: 2016
  24. PRAZEPAM [Interacting]
     Active Substance: PRAZEPAM
     Indication: Product used for unknown indication
     Route: 048
     Dates: start: 20160902, end: 2016
  25. OXYCONTIN [Interacting]
     Active Substance: OXYCODONE HYDROCHLORIDE
     Indication: Product used for unknown indication
     Route: 065
  26. ETIFOXINE [Suspect]
     Active Substance: ETIFOXINE
     Indication: Product used for unknown indication
     Route: 065
     Dates: start: 201608, end: 20160908
  27. SKENAN [Suspect]
     Active Substance: MORPHINE SULFATE
     Indication: Back pain
     Route: 065
     Dates: start: 2016, end: 2016
  28. SKENAN [Suspect]
     Active Substance: MORPHINE SULFATE
     Dosage: 1 DOSAGE FORM, ONCE A DAY
     Route: 065
     Dates: start: 201607
  29. CLOBAZAM [Interacting]
     Active Substance: CLOBAZAM
     Indication: Product used for unknown indication
     Route: 048
     Dates: start: 201608, end: 20160809
  30. VALIUM [Interacting]
     Active Substance: DIAZEPAM
     Indication: Depression
     Route: 048
     Dates: start: 20160902, end: 20160905
  31. VALIUM [Interacting]
     Active Substance: DIAZEPAM
     Indication: Psychiatric symptom
  32. QUETIAPINE FUMARATE [Suspect]
     Active Substance: QUETIAPINE FUMARATE
     Indication: Product used for unknown indication
     Route: 048
     Dates: start: 20160830, end: 2016
  33. QUETIAPINE FUMARATE [Suspect]
     Active Substance: QUETIAPINE FUMARATE
     Route: 048
  34. QUETIAPINE FUMARATE [Suspect]
     Active Substance: QUETIAPINE FUMARATE
     Route: 048
  35. NORDAZEPAM [Interacting]
     Active Substance: NORDAZEPAM
     Indication: Back pain
     Route: 048
  36. MEPHENESIN [Interacting]
     Active Substance: MEPHENESIN
     Indication: Product used for unknown indication
     Route: 065
  37. NAFRONYL [Suspect]
     Active Substance: NAFRONYL
     Indication: Product used for unknown indication
     Route: 065
  38. CODEINE PHOSPHATE\IBUPROFEN [Suspect]
     Active Substance: CODEINE PHOSPHATE\IBUPROFEN
     Indication: Product used for unknown indication
     Route: 048
     Dates: start: 20160902, end: 2016
  39. CLONAZEPAM [Suspect]
     Active Substance: CLONAZEPAM
     Indication: Product used for unknown indication
     Route: 048
  40. NIFUROXAZIDE [Suspect]
     Active Substance: NIFUROXAZIDE
     Indication: Product used for unknown indication
     Route: 048
     Dates: start: 2016, end: 2016
  41. SKENAN [Suspect]
     Active Substance: MORPHINE SULFATE
     Indication: Back pain
     Dosage: 60 MILLIGRAM, ONCE A DAY
     Route: 048
     Dates: start: 20160902, end: 20160905
  42. COCAINE [Suspect]
     Active Substance: COCAINE
     Indication: Product used for unknown indication
     Route: 065
  43. TEMAZEPAM [Suspect]
     Active Substance: TEMAZEPAM
     Indication: Product used for unknown indication
     Route: 065
  44. TRAMADOL HYDROCHLORIDE [Suspect]
     Active Substance: TRAMADOL HYDROCHLORIDE
     Indication: Back pain
     Route: 048
     Dates: start: 20160903, end: 2016
  45. MORPHINE [Suspect]
     Active Substance: MORPHINE
     Indication: Product used for unknown indication
     Route: 065
  46. AMISULPRIDE [Interacting]
     Active Substance: AMISULPRIDE
     Indication: Depression
     Route: 048
  47. AMISULPRIDE [Interacting]
     Active Substance: AMISULPRIDE
     Indication: Psychiatric symptom
  48. OXAZEPAM [Concomitant]
     Active Substance: OXAZEPAM
     Indication: Psychiatric symptom
     Route: 048
  49. OXAZEPAM [Concomitant]
     Active Substance: OXAZEPAM
     Indication: Depression

REACTIONS (46)
  - Coma [Fatal]
  - Cardiomyopathy [Fatal]
  - Myocarditis [Fatal]
  - Respiratory depression [Fatal]
  - Hepatitis acute [Fatal]
  - Encephalopathy [Fatal]
  - Somnolence [Fatal]
  - Accidental poisoning [Fatal]
  - Overdose [Fatal]
  - Labelled drug-drug interaction issue [Fatal]
  - Myocardial infarction [Fatal]
  - Hepatic cytolysis [Fatal]
  - Hyperglycaemia [Fatal]
  - Confusional state [Fatal]
  - Jaundice [Fatal]
  - Cholecystitis infective [Fatal]
  - Drug screen false positive [Fatal]
  - Pulmonary oedema [Fatal]
  - Toxicity to various agents [Fatal]
  - Coronary artery stenosis [Fatal]
  - Cardiac disorder [Fatal]
  - Cardio-respiratory arrest [Fatal]
  - White blood cell count increased [Fatal]
  - Pancreas infection [Fatal]
  - Hepatic enzyme increased [Fatal]
  - Ketosis [Fatal]
  - Necrosis [Fatal]
  - Intentional self-injury [Fatal]
  - Stenosis [Fatal]
  - Gallbladder injury [Fatal]
  - Drug abuse [Fatal]
  - Hypotension [Unknown]
  - Synovitis [Unknown]
  - Arrhythmia [Unknown]
  - Product prescribing issue [Unknown]
  - Hepatic failure [Unknown]
  - Hepatobiliary disease [Unknown]
  - Inflammation [Unknown]
  - Asteatosis [Unknown]
  - Monocytosis [Unknown]
  - Leukocytosis [Unknown]
  - Hypersomnia [Unknown]
  - Panic attack [Unknown]
  - Aggression [Unknown]
  - Thirst [Unknown]
  - Logorrhoea [Unknown]

NARRATIVE: CASE EVENT DATE: 20160101
